FAERS Safety Report 9026484 (Version 2)
Quarter: 2013Q1

REPORT INFORMATION
  Report Type: Spontaneous
  Country: JP (occurrence: JP)
  Receive Date: 20130123
  Receipt Date: 20130213
  Transmission Date: 20140127
  Serious: Yes (Other)
  Sender: FDA-Public Use
  Company Number: JP-JNJFOC-20130108958

PATIENT
  Sex: 0

DRUGS (2)
  1. DUROTEP [Suspect]
     Indication: PRODUCT USED FOR UNKNOWN INDICATION
     Route: 062
  2. OTHER OPIOID MEDICATIONS [Concomitant]
     Route: 065

REACTIONS (9)
  - Delirium [Unknown]
  - Sedation [Unknown]
  - Constipation [Unknown]
  - Dyspnoea [Unknown]
  - Restlessness [Unknown]
  - Somnolence [Unknown]
  - Vomiting [Unknown]
  - Nausea [Unknown]
  - Breakthrough pain [Unknown]
